FAERS Safety Report 9949038 (Version 1)
Quarter: 2014Q1

REPORT INFORMATION
  Report Type: Report from Study
  Country: US (occurrence: US)
  Receive Date: 20140304
  Receipt Date: 20140304
  Transmission Date: 20141002
  Serious: Yes (Other)
  Sender: FDA-Public Use
  Company Number: US-ROCHE-1342271

PATIENT
  Age: 53 Year
  Sex: Male

DRUGS (4)
  1. LUCENTIS [Suspect]
     Indication: AGE-RELATED MACULAR DEGENERATION
     Route: 050
  2. AVASTIN [Suspect]
     Indication: PRODUCT USED FOR UNKNOWN INDICATION
     Route: 050
  3. BRIMONIDINE [Concomitant]
     Dosage: BID OD
     Route: 065
  4. ALPHAGAN [Concomitant]
     Dosage: BID OD
     Route: 065

REACTIONS (19)
  - Macular oedema [Unknown]
  - Conjunctival hyperaemia [Unknown]
  - Vision blurred [Unknown]
  - Metamorphopsia [Unknown]
  - Photopsia [Unknown]
  - Vitreous floaters [Unknown]
  - Oscillopsia [Unknown]
  - Visual acuity reduced [Unknown]
  - Lip swelling [Unknown]
  - Pallor [Unknown]
  - Retinal depigmentation [Unknown]
  - Eye laser scar [Unknown]
  - Stress [Unknown]
  - Vitreous detachment [Unknown]
  - Therapeutic response decreased [Unknown]
  - Optic neuropathy [Unknown]
  - Eyelid ptosis [Unknown]
  - Glaucoma [Unknown]
  - Detachment of macular retinal pigment epithelium [Unknown]
